FAERS Safety Report 5914453-0 (Version None)
Quarter: 2008Q4

REPORT INFORMATION
  Report Type: 
  Country: None (occurrence: None)
  Receive Date: 20081007
  Receipt Date: 20081001
  Transmission Date: 20090506
  Serious: Yes (Other)
  Sender: FDA-Public Use
  Company Number: 2008SP005886

PATIENT
  Age: 41 Year
  Sex: Female
  Weight: 58.9676 kg

DRUGS (2)
  1. RIBAVIRIN [Suspect]
     Indication: HEPATITIS C
     Dosage: PO
     Route: 048
     Dates: start: 20070201, end: 20070801
  2. PEGASYS [Suspect]
     Indication: HEPATITIS C
     Dosage: SC
     Route: 058
     Dates: start: 20070201, end: 20070801

REACTIONS (16)
  - ALOPECIA [None]
  - ANKLE FRACTURE [None]
  - ARTHRALGIA [None]
  - BENIGN BREAST NEOPLASM [None]
  - BENIGN NEOPLASM OF THYROID GLAND [None]
  - BONE DISORDER [None]
  - CRYING [None]
  - DEPRESSION [None]
  - FATIGUE [None]
  - GOITRE [None]
  - INSOMNIA [None]
  - OBSTRUCTIVE AIRWAYS DISORDER [None]
  - TENDON DISORDER [None]
  - VIRAL LOAD INCREASED [None]
  - VOCAL CORD THICKENING [None]
  - WEIGHT INCREASED [None]
